FAERS Safety Report 21455993 (Version 1)
Quarter: 2022Q4

REPORT INFORMATION
  Report Type: Report from Study
  Country: CZ (occurrence: CZ)
  Receive Date: 20221014
  Receipt Date: 20221014
  Transmission Date: 20230113
  Serious: Yes (Other)
  Sender: FDA-Public Use
  Company Number: CZ-CELLTRION INC.-2022CZ013483

PATIENT

DRUGS (1)
  1. INFLIXIMAB [Suspect]
     Active Substance: INFLIXIMAB
     Indication: Crohn^s disease
     Route: 042

REACTIONS (2)
  - Hernia repair [Recovered/Resolved]
  - Skin infection [Not Recovered/Not Resolved]

NARRATIVE: CASE EVENT DATE: 20220125
